FAERS Safety Report 11213448 (Version 2)
Quarter: 2015Q3

REPORT INFORMATION
  Report Type: Spontaneous
  Country: US (occurrence: US)
  Receive Date: 20150623
  Receipt Date: 20150828
  Transmission Date: 20151125
  Serious: No
  Sender: FDA-Public Use
  Company Number: US-PFIZER INC-2015203963

PATIENT
  Age: 71 Year
  Sex: Female
  Weight: 97.51 kg

DRUGS (16)
  1. OPSUMIT [Concomitant]
     Active Substance: MACITENTAN
     Indication: DYSPNOEA
     Dosage: 10 MG, UNK
     Dates: start: 201502
  2. LOSARTAN POTASSIUM. [Concomitant]
     Active Substance: LOSARTAN POTASSIUM
     Dosage: 25 MG, UNK
     Dates: end: 201506
  3. IRON [Concomitant]
     Active Substance: IRON
     Dosage: 65 MG, 3X/DAY
     Dates: start: 2014
  4. BICILLIN [Concomitant]
     Active Substance: PENICILLIN G BENZATHINE
     Dosage: 5 MG, UNK
  5. REVATIO [Suspect]
     Active Substance: SILDENAFIL CITRATE
     Indication: PULMONARY HYPERTENSION
     Dosage: 20 MG, 3X/DAY (ONE THREE TIMES A DAY AT A BED TIME)
     Route: 048
     Dates: start: 201502
  6. LEVOTHYROXINE SODIUM. [Concomitant]
     Active Substance: LEVOTHYROXINE SODIUM
     Dosage: 88 ?G, UNK
     Dates: start: 2010
  7. FUROSEMIDE. [Concomitant]
     Active Substance: FUROSEMIDE
     Dosage: 20 MG, UNK
     Dates: start: 2010
  8. EVENING PRIMROSE OIL [Concomitant]
     Active Substance: EVENING PRIMROSE OIL
     Dosage: UNK
     Dates: start: 2010
  9. ATORVASTATIN [Concomitant]
     Active Substance: ATORVASTATIN
     Dosage: 20 MG, UNK
     Dates: start: 2010
  10. REVATIO [Suspect]
     Active Substance: SILDENAFIL CITRATE
     Indication: DYSPNOEA
  11. CYMBALTA [Concomitant]
     Active Substance: DULOXETINE HYDROCHLORIDE
     Dosage: 50 MG, UNK
     Dates: start: 2010
  12. VICTOZA [Concomitant]
     Active Substance: LIRAGLUTIDE
     Dosage: 1.8 IU, UNK
     Dates: start: 2010
  13. BABY ASPIRIN [Concomitant]
     Active Substance: ASPIRIN
     Dosage: UNK
     Dates: start: 2010
  14. BIOTIN [Concomitant]
     Active Substance: BIOTIN
     Dosage: 10000 MG, UNK
     Dates: start: 2010
  15. VITAMIN B12 [Concomitant]
     Active Substance: CYANOCOBALAMIN
     Indication: SUPPLEMENTATION THERAPY
     Dosage: 1000 MG, UNK
     Dates: start: 2010
  16. CALCIFEROL [Concomitant]
     Active Substance: ERGOCALCIFEROL
     Dosage: 0.25 ?G,THREE TIMES A WEEK
     Dates: start: 2014

REACTIONS (2)
  - Stress [Not Recovered/Not Resolved]
  - Dyspnoea [Not Recovered/Not Resolved]
